FAERS Safety Report 8481332 (Version 2)
Quarter: 2013Q1

REPORT INFORMATION
  Report Type: Spontaneous
  Country: None (occurrence: None)
  Receive Date: 20120321
  Receipt Date: 20120921
  Transmission Date: 20140127
  Serious: Yes (Hospitalization, Disabling, Other)
  Sender: FDA-Public Use
  Company Number: AUR-APL-2012-01373

PATIENT
  Age: 79 Year
  Sex: Male
  Weight: 70 kg

DRUGS (3)
  1. LISINOPRIL (LISINOPRIL) [Suspect]
     Indication: HYPERTENSION
     Dates: start: 2004, end: 200606
  2. BENDROFLUMETHIAZIDE (BENDROFLUMETHIAZIDE) [Concomitant]
  3. WARFARIN (WARFARIN) [Concomitant]

REACTIONS (6)
  - Extrasystoles [None]
  - Hemiplegia [None]
  - Peripheral nerve lesion [None]
  - Transient ischaemic attack [None]
  - Atrial fibrillation [None]
  - Cerebral artery embolism [None]
